FAERS Safety Report 14654040 (Version 3)
Quarter: 2025Q1

REPORT INFORMATION
  Report Type: Spontaneous
  Country: SI (occurrence: SI)
  Receive Date: 20180319
  Receipt Date: 20250307
  Transmission Date: 20250408
  Serious: Yes (Death, Other)
  Sender: NOVARTIS
  Company Number: PHHY2008SI047002

PATIENT

DRUGS (11)
  1. CYCLOSPORINE [Suspect]
     Active Substance: CYCLOSPORINE
     Indication: Prophylaxis against transplant rejection
     Route: 042
  2. CYCLOSPORINE [Suspect]
     Active Substance: CYCLOSPORINE
     Indication: Immunosuppressant drug therapy
  3. CYCLOSPORINE [Suspect]
     Active Substance: CYCLOSPORINE
     Indication: Prophylaxis against transplant rejection
     Dosage: 3 MG/KG, QD (DAY 2) (MICROEMULSION)
     Route: 042
  4. METHYLPREDNISOLONE [Suspect]
     Active Substance: METHYLPREDNISOLONE
     Indication: Immunosuppressant drug therapy
     Route: 042
  5. METHYLPREDNISOLONE [Suspect]
     Active Substance: METHYLPREDNISOLONE
     Indication: Prophylaxis against transplant rejection
     Dosage: UNK UNK, QD (FROM DAY 4)
     Route: 048
  6. ZENAPAX [Suspect]
     Active Substance: DACLIZUMAB
     Indication: Prophylaxis against transplant rejection
     Route: 042
  7. CELLCEPT [Suspect]
     Active Substance: MYCOPHENOLATE MOFETIL
     Indication: Prophylaxis against transplant rejection
     Dosage: 3 OT, QD (FROM DAY 1)
     Route: 065
  8. CELLCEPT [Suspect]
     Active Substance: MYCOPHENOLATE MOFETIL
     Indication: Immunosuppressant drug therapy
     Dosage: 0.75 G, TID ((0.5 G THREE TIMES DAILY IN PATIENTS WITH BODY WEIGHT{ 50 KG) FROM DAY 1)
     Route: 065
  9. DILTIAZEM [Concomitant]
     Active Substance: DILTIAZEM
     Indication: Product used for unknown indication
     Route: 042
  10. DILTIAZEM [Concomitant]
     Active Substance: DILTIAZEM
     Route: 048
  11. SULFAMETHOXAZOLE\TRIMETHOPRIM [Concomitant]
     Active Substance: SULFAMETHOXAZOLE\TRIMETHOPRIM
     Indication: Prophylaxis
     Route: 065

REACTIONS (2)
  - Disseminated aspergillosis [Fatal]
  - Hypersensitivity [Unknown]
